FAERS Safety Report 21507855 (Version 1)
Quarter: 2022Q4

REPORT INFORMATION
  Report Type: Spontaneous
  Country: US (occurrence: None)
  Receive Date: 20221025
  Receipt Date: 20221025
  Transmission Date: 20230112
  Serious: No
  Sender: FDA-Public Use
  Company Number: None

PATIENT
  Sex: Male

DRUGS (1)
  1. EVEROLIMUS [Suspect]
     Active Substance: EVEROLIMUS
     Dosage: 7.5MG DAILY ORAL
     Route: 048

REACTIONS (3)
  - Blood glucose increased [None]
  - Lipids increased [None]
  - Drug ineffective [None]
